FAERS Safety Report 18690898 (Version 1)
Quarter: 2021Q1

REPORT INFORMATION
  Report Type: Other
  Country: IT (occurrence: IT)
  Receive Date: 20210101
  Receipt Date: 20210101
  Transmission Date: 20210419
  Serious: Yes (Other)
  Sender: FDA-Public Use
  Company Number: IT-ROCHE-2741660

PATIENT
  Age: 55 Year
  Sex: Female

DRUGS (3)
  1. VALGANCICLOVIR. [Suspect]
     Active Substance: VALGANCICLOVIR
     Indication: CYTOMEGALOVIRUS INFECTION REACTIVATION
     Route: 065
  2. FOSCARNET [Concomitant]
     Active Substance: FOSCARNET
  3. VALGANCICLOVIR. [Suspect]
     Active Substance: VALGANCICLOVIR
     Indication: STEM CELL TRANSPLANT

REACTIONS (3)
  - Myelosuppression [Unknown]
  - Pathogen resistance [Unknown]
  - Electrolyte imbalance [Unknown]
